FAERS Safety Report 6640204-0 (Version None)
Quarter: 2010Q1

REPORT INFORMATION
  Report Type: 
  Country: None (occurrence: None)
  Receive Date: 20100303
  Receipt Date: 20091211
  Transmission Date: 20100710
  Serious: Yes (Hospitalization)
  Sender: FDA-Public Use
  Company Number: DSA_65282_2010

PATIENT
  Sex: Male
  Weight: 175 kg

DRUGS (6)
  1. NAPRELAN [Suspect]
     Indication: PAIN
     Dosage: 750 MG QD ORAL
     Route: 048
     Dates: end: 20090201
  2. ALPRAZOLAM [Concomitant]
  3. ESOMEPRAZOLE [Concomitant]
  4. THEOPHYLLINE [Concomitant]
  5. ALLOPURINOL [Concomitant]
  6. METHENAMINE AND SODIUM BIPHOSPHATE TAB [Concomitant]

REACTIONS (1)
  - GASTROINTESTINAL HAEMORRHAGE [None]
